FAERS Safety Report 18937717 (Version 7)
Quarter: 2021Q3

REPORT INFORMATION
  Report Type: Report from Study
  Country: GB (occurrence: GB)
  Receive Date: 20210224
  Receipt Date: 20210813
  Transmission Date: 20211014
  Serious: Yes (Hospitalization)
  Sender: FDA-Public Use
  Company Number: GB-MYLANLABS-2021M1002205

PATIENT
  Age: 38 Year
  Sex: Female
  Weight: 68 kg

DRUGS (21)
  1. CYCLOPHOSPHAMIDE. [Suspect]
     Active Substance: CYCLOPHOSPHAMIDE
     Dosage: UNK
     Route: 042
  2. ONDANSETRON [Concomitant]
     Active Substance: ONDANSETRON
     Dosage: 16 MILLIGRAM, UNK
     Route: 065
     Dates: start: 20130514
  3. DEXAMETHASONE. [Concomitant]
     Active Substance: DEXAMETHASONE
     Dosage: 16 MILLIGRAM (ALSO TOOK FROM 15?JUL?2013 TO 17?JUL?2013)
     Route: 065
     Dates: start: 20130715, end: 20130717
  4. PEGFILGRASTIM [Concomitant]
     Active Substance: PEGFILGRASTIM
     Dosage: UNK
     Dates: start: 20130515
  5. PARACETAMOL [Concomitant]
     Active Substance: ACETAMINOPHEN
     Dosage: UNK
     Dates: start: 20130717
  6. EPIRUBICIN [Suspect]
     Active Substance: EPIRUBICIN
     Indication: BREAST CANCER
     Dosage: 100 MG/M2 (190 MG) (LAST DOSE)
     Route: 042
     Dates: start: 20130514, end: 20130625
  7. DOMPERIDONE [Concomitant]
     Active Substance: DOMPERIDONE
     Dosage: 40 MILLIGRAM
     Route: 065
     Dates: start: 20130514
  8. PEGFILGRASTIM [Concomitant]
     Active Substance: PEGFILGRASTIM
     Dosage: 6 MILLIGRAM
     Route: 065
     Dates: start: 20130515
  9. PARACETAMOL [Concomitant]
     Active Substance: ACETAMINOPHEN
     Dosage: 4000 MILLIGRAM
     Route: 065
     Dates: start: 20130717
  10. TRASTUZUMAB. [Suspect]
     Active Substance: TRASTUZUMAB
     Dosage: 546 MG MOST RECENT DOSE ON 16/JUL/2013.
     Route: 041
     Dates: start: 20130716
  11. DOMPERIDONE [Concomitant]
     Active Substance: DOMPERIDONE
     Dosage: 80 MILLIGRAM
     Route: 065
     Dates: start: 20130514
  12. DEXAMETHASONE. [Concomitant]
     Active Substance: DEXAMETHASONE
     Dosage: 40 MILLIGRAM
     Route: 065
     Dates: start: 20130715
  13. CYCLOPHOSPHAMIDE. [Suspect]
     Active Substance: CYCLOPHOSPHAMIDE
     Indication: BREAST CANCER
     Dosage: 500 MG/M2 (900 MG) (LAST DOSE PRIOR TO SAE: 25/JUN/2013)
     Route: 042
     Dates: start: 20130514, end: 20130625
  14. DOMPERIDONE [Concomitant]
     Active Substance: DOMPERIDONE
     Dosage: 40 MILLIGRAM
     Route: 065
     Dates: start: 20130715
  15. DEXAMETHASONE. [Concomitant]
     Active Substance: DEXAMETHASONE
     Dosage: UNK
     Route: 065
     Dates: start: 20130514
  16. TRASTUZUMAB. [Suspect]
     Active Substance: TRASTUZUMAB
     Indication: BREAST CANCER
     Dosage: 546 MILLIGRAM, CYCLIC: EVERY 3 WEEKS (FORM STRENGTH: 8 MG/KG)
     Route: 042
     Dates: start: 20130716
  17. DOCETAXEL. [Suspect]
     Active Substance: DOCETAXEL
     Indication: BREAST CANCER
     Dosage: 190 MILLIGRAM, CYCLIC, Q3W (FORM STRENGTH: 100 MG/M2)
     Route: 042
     Dates: start: 20130716
  18. FLUOROURACIL. [Suspect]
     Active Substance: FLUOROURACIL
     Indication: BREAST CANCER
     Dosage: 500 MG/M2 (900 MG) (LAST DOSE PRIOR TO SAE: 25/JUN/2013)
     Route: 042
     Dates: start: 20130514, end: 20130625
  19. PERTUZUMAB. [Suspect]
     Active Substance: PERTUZUMAB
     Indication: BREAST CANCER
     Dosage: UNK UNK, Q3W
     Route: 042
  20. PERTUZUMAB. [Suspect]
     Active Substance: PERTUZUMAB
     Dosage: UNK UNK, Q3W (INTRAVENOUS BLINDED)
     Route: 042
     Dates: start: 20130716
  21. DEXAMETHASONE. [Concomitant]
     Active Substance: DEXAMETHASONE
     Dosage: 8 MILLIGRAM (ALSO TOOK FROM 15?JUL?2013 TO 17?JUL?2013)
     Route: 065
     Dates: start: 20130514

REACTIONS (6)
  - Off label use [Unknown]
  - Myalgia [Unknown]
  - Fatigue [Recovered/Resolved]
  - Neutropenia [Recovered/Resolved]
  - Arthralgia [Unknown]
  - Vomiting [Recovered/Resolved]

NARRATIVE: CASE EVENT DATE: 20130626
